FAERS Safety Report 6756636-6 (Version None)
Quarter: 2010Q2

REPORT INFORMATION
  Report Type: 
  Country: None (occurrence: None)
  Receive Date: 20100604
  Receipt Date: 20100528
  Transmission Date: 20101027
  Serious: Yes (Other)
  Sender: FDA-Public Use
  Company Number: JP-MERCK-1006USA00162

PATIENT
  Age: 52 Year

DRUGS (6)
  1. EMEND [Suspect]
     Indication: PROPHYLAXIS OF NAUSEA AND VOMITING
     Route: 048
     Dates: start: 20100518, end: 20100518
  2. EMEND [Suspect]
     Route: 048
     Dates: start: 20100519, end: 20100520
  3. RANDA [Suspect]
     Indication: NON-SMALL CELL LUNG CANCER
     Route: 042
     Dates: start: 20100518, end: 20100518
  4. DECADRON [Concomitant]
     Route: 048
     Dates: start: 20100518, end: 20100520
  5. KYTRIL [Concomitant]
     Route: 065
     Dates: start: 20100518, end: 20100520
  6. NAVELBINE [Concomitant]
     Route: 065
     Dates: start: 20100518, end: 20100518

REACTIONS (2)
  - DYSGEUSIA [None]
  - RENAL IMPAIRMENT [None]
